FAERS Safety Report 4796662-X (Version None)
Quarter: 2005Q4

REPORT INFORMATION
  Report Type: 
  Country: None (occurrence: None)
  Receive Date: 20051013
  Receipt Date: 20051004
  Transmission Date: 20060501
  Serious: Yes (Life-Threatening, Hospitalization, Other)
  Sender: FDA-Public Use
  Company Number: US-JNJFOC-20050502887

PATIENT
  Sex: Male
  Weight: 88 kg

DRUGS (16)
  1. REMICADE [Suspect]
     Indication: RHEUMATOID ARTHRITIS
     Dosage: 4 INFUSIONS DURING THIS PERIOD
     Route: 042
  2. PREDNISONE [Suspect]
     Indication: DRUG USE FOR UNKNOWN INDICATION
  3. IPRATROPIUM BROMIDE [Concomitant]
  4. TRIAMCINOLONE [Concomitant]
  5. ALBUTEROL [Concomitant]
  6. SPECTRAVITE SENIOR [Concomitant]
  7. GLUCOSAMINE AND CHONDROITIN [Concomitant]
  8. GLUCOSAMINE AND CHONDROITIN [Concomitant]
  9. GLUCOSAMINE AND CHONDROITIN [Concomitant]
  10. GLUCOSAMINE AND CHONDROITIN [Concomitant]
  11. PLAVIX [Concomitant]
  12. FOLIC ACID [Concomitant]
  13. AGGRENOX [Concomitant]
  14. AGGRENOX [Concomitant]
  15. FERROUS SULFATE TAB [Concomitant]
  16. ZOCOR [Concomitant]

REACTIONS (15)
  - B-CELL LYMPHOMA [None]
  - BRONCHITIS [None]
  - CHRONIC OBSTRUCTIVE PULMONARY DISEASE [None]
  - DIVERTICULUM [None]
  - EAR INFECTION [None]
  - HERPES ZOSTER [None]
  - HYPOXIA [None]
  - INCISIONAL HERNIA [None]
  - INFLUENZA [None]
  - PLATELET DISORDER [None]
  - PNEUMONIA [None]
  - POSTOPERATIVE INFECTION [None]
  - SINUSITIS [None]
  - SPLEEN DISORDER [None]
  - URINARY TRACT INFECTION [None]
